FAERS Safety Report 15097830 (Version 1)
Quarter: 2018Q3

REPORT INFORMATION
  Report Type: Spontaneous
  Country: US (occurrence: US)
  Receive Date: 20180702
  Receipt Date: 20180702
  Transmission Date: 20181010
  Serious: No
  Sender: FDA-Public Use
  Company Number: US-PFM-2018-00594

PATIENT

DRUGS (4)
  1. BANOPHEN [Concomitant]
     Active Substance: DIPHENHYDRAMINE HYDROCHLORIDE
     Indication: PRODUCT USED FOR UNKNOWN INDICATION
  2. VITAMIN D3 [Concomitant]
     Active Substance: CHOLECALCIFEROL
     Indication: PRODUCT USED FOR UNKNOWN INDICATION
  3. HEMANGEOL [Suspect]
     Active Substance: PROPRANOLOL HYDROCHLORIDE
     Indication: INFANTILE HAEMANGIOMA
     Dosage: 1 ML, TID (3/DAY)
     Route: 048
     Dates: start: 20171025
  4. LEVETIRACETAM. [Concomitant]
     Active Substance: LEVETIRACETAM
     Indication: PRODUCT USED FOR UNKNOWN INDICATION

REACTIONS (5)
  - Drug ineffective [Unknown]
  - Drug administered to patient of inappropriate age [Unknown]
  - Insomnia [Unknown]
  - Peripheral coldness [Unknown]
  - Off label use [Unknown]

NARRATIVE: CASE EVENT DATE: 20171213
